FAERS Safety Report 6456168-9 (Version None)
Quarter: 2009Q4

REPORT INFORMATION
  Report Type: 
  Country: None (occurrence: None)
  Receive Date: 20091125
  Receipt Date: 20091111
  Transmission Date: 20100525
  Serious: Yes (Other)
  Sender: FDA-Public Use
  Company Number: CA-ELI_LILLY_AND_COMPANY-CA200908006257

PATIENT
  Age: 89 Year
  Sex: Female

DRUGS (6)
  1. FORTEO [Suspect]
     Indication: OSTEOPOROSIS
     Dosage: 20 UG, DAILY (1/D)
     Route: 058
     Dates: start: 20081002, end: 20090101
  2. BABY ASPIRIN [Concomitant]
  3. TYLENOL (CAPLET) [Concomitant]
  4. CRESTOR [Concomitant]
  5. DONEPEZIL HCL [Concomitant]
  6. CALCIUM [Concomitant]

REACTIONS (3)
  - ASTHENIA [None]
  - COGNITIVE DISORDER [None]
  - LOSS OF CONSCIOUSNESS [None]
